FAERS Safety Report 5312563-2 (Version None)
Quarter: 2007Q2

REPORT INFORMATION
  Report Type: 
  Country: None (occurrence: None)
  Receive Date: 20070430
  Receipt Date: 20070116
  Transmission Date: 20071010
  Serious: No
  Sender: FDA-Public Use
  Company Number: 2007UW00879

PATIENT
  Sex: Female
  Weight: 79.4 kg

DRUGS (7)
  1. NEXIUM [Suspect]
     Indication: GASTROOESOPHAGEAL REFLUX DISEASE
     Route: 048
     Dates: start: 20061227
  2. SEROQUEL [Concomitant]
  3. SYNTHROID [Concomitant]
  4. REMICADE [Concomitant]
  5. LORAZEPAM [Concomitant]
  6. VERAPAMIL [Concomitant]
  7. CYMBALTA [Concomitant]

REACTIONS (1)
  - AGEUSIA [None]
